FAERS Safety Report 11044435 (Version 1)
Quarter: 2015Q2

REPORT INFORMATION
  Report Type: Spontaneous
  Country: US (occurrence: None)
  Receive Date: 20150416
  Receipt Date: 20150416
  Transmission Date: 20150821
  Serious: Yes (Other)
  Sender: FDA-Public Use
  Company Number: None

PATIENT
  Age: 9 Year
  Weight: 43.09 kg

DRUGS (3)
  1. GENERIC INTUNIV 3 MG [Suspect]
     Active Substance: GUANFACINE HYDROCHLORIDE
     Indication: AFFECTIVE DISORDER
     Route: 048
  2. GENERIC INTUNIV [Concomitant]
  3. BN INTUNIV [Concomitant]

REACTIONS (3)
  - Anger [None]
  - Aggression [None]
  - Product substitution issue [None]

NARRATIVE: CASE EVENT DATE: 20150110
